FAERS Safety Report 6223146-4 (Version None)
Quarter: 2009Q2

REPORT INFORMATION
  Report Type: 
  Country: None (occurrence: None)
  Receive Date: 20090611
  Receipt Date: 20090601
  Transmission Date: 20091009
  Serious: Yes (Hospitalization, Other)
  Sender: FDA-Public Use
  Company Number: PHHY2009MX20614

PATIENT
  Age: 58 Year
  Sex: Female

DRUGS (1)
  1. ZELMAC [Suspect]
     Indication: IRRITABLE BOWEL SYNDROME
     Dosage: 2 TABS (6 MG) PER DAY
     Route: 048
     Dates: start: 20090401

REACTIONS (2)
  - BLOOD GLUCOSE FLUCTUATION [None]
  - PNEUMONIA [None]
